FAERS Safety Report 9209229 (Version 1)
Quarter: 2013Q1

REPORT INFORMATION
  Report Type: Spontaneous
  Country: US (occurrence: None)
  Receive Date: 20120817
  Receipt Date: 20120817
  Transmission Date: 20140127
  Serious: Yes (Other)
  Sender: FDA-Public Use
  Company Number: 201111167

PATIENT
  Age: 64 Year
  Sex: Female

DRUGS (6)
  1. LIORESAL INTRATHECAL (BACLOFEN INJECTION) [Suspect]
     Indication: MUSCLE SPASTICITY
     Route: 037
  2. DILAUDID [Concomitant]
  3. FENTANYL [Concomitant]
  4. BACLOFEN [Concomitant]
  5. MORPHINE [Concomitant]
  6. PRIALT [Concomitant]

REACTIONS (2)
  - Therapeutic response decreased [None]
  - Underdose [None]
